FAERS Safety Report 5849258-2 (Version None)
Quarter: 2008Q3

REPORT INFORMATION
  Report Type: 
  Country: None (occurrence: None)
  Receive Date: 20080819
  Receipt Date: 20080806
  Transmission Date: 20090109
  Serious: Yes (Life-Threatening)
  Sender: FDA-Public Use
  Company Number: TR-BAYER-200823926GPV

PATIENT
  Age: 40 Year
  Sex: Female
  Weight: 65 kg

DRUGS (2)
  1. TAMOXIFEN CITRATE [Suspect]
     Indication: DRUG USE FOR UNKNOWN INDICATION
     Route: 048
  2. MIRENA [Suspect]
     Indication: MENORRHAGIA
     Route: 015
     Dates: start: 20061110, end: 20070820

REACTIONS (3)
  - ENDOMETRIAL CANCER [None]
  - ENDOMETRIAL DISORDER [None]
  - ENDOMETRIAL HYPERTROPHY [None]
